FAERS Safety Report 7394133-8 (Version None)
Quarter: 2011Q1

REPORT INFORMATION
  Report Type: 
  Country: None (occurrence: None)
  Receive Date: 20110325
  Receipt Date: 20110310
  Transmission Date: 20110831
  Serious: Yes (Hospitalization)
  Sender: FDA-Public Use
  Company Number: 2011-0363

PATIENT
  Age: 41 Year
  Sex: Male
  Weight: 91 kg

DRUGS (2)
  1. DYSPORT [Suspect]
     Indication: SKIN WRINKLING
     Dosage: 135 UNITS (135 UNITS,SINGLE CYCLE)
     Dates: start: 20110111, end: 20110111
  2. DYSPORT [Suspect]
     Indication: OFF LABEL USE
     Dosage: 135 UNITS (135 UNITS,SINGLE CYCLE)
     Dates: start: 20110111, end: 20110111

REACTIONS (5)
  - INJECTION SITE PAIN [None]
  - INFLUENZA LIKE ILLNESS [None]
  - PRODUCT QUALITY ISSUE [None]
  - INSOMNIA [None]
  - HEADACHE [None]
